FAERS Safety Report 21133589 (Version 2)
Quarter: 2022Q3

REPORT INFORMATION
  Report Type: Spontaneous
  Country: AU (occurrence: None)
  Receive Date: 20220726
  Receipt Date: 20220907
  Transmission Date: 20221026
  Serious: Yes (Other)
  Sender: FDA-Public Use
  Company Number: 2022A259670

PATIENT
  Sex: Female

DRUGS (1)
  1. EVUSHELD [Suspect]
     Active Substance: CILGAVIMAB\TIXAGEVIMAB
     Route: 030

REACTIONS (8)
  - Aphasia [Unknown]
  - Headache [Unknown]
  - Ocular discomfort [Unknown]
  - Photophobia [Unknown]
  - Hyperacusis [Unknown]
  - Fatigue [Unknown]
  - Somnolence [Unknown]
  - Throat irritation [Unknown]
